FAERS Safety Report 4403608-2 (Version None)
Quarter: 2004Q3

REPORT INFORMATION
  Report Type: 
  Country: None (occurrence: None)
  Receive Date: 20040715
  Receipt Date: 20040629
  Transmission Date: 20050211
  Serious: Yes (Death)
  Sender: FDA-Public Use
  Company Number: US-JNJFOC-20040702267

PATIENT
  Age: 77 Year
  Sex: Male

DRUGS (10)
  1. LEVOFLOXACIN [Suspect]
     Dosage: 500 MG, INTRAVENOUS
     Route: 042
     Dates: start: 20010723, end: 20010723
  2. ASPIRIN [Concomitant]
  3. HUMULIN 70/30 (HUMAN MIXTARD) [Concomitant]
  4. MORPHINE [Concomitant]
  5. NITRO SPRAY (ISOSORBIDE DINITRATE) [Concomitant]
  6. NITROPASTE (GLYCERYL TRINITRATE) [Concomitant]
  7. PLAVIX [Concomitant]
  8. PROVENTIL (SALBUTMOL) [Concomitant]
  9. SINGULAIR [Concomitant]
  10. ZOCOR [Concomitant]

REACTIONS (4)
  - RESPIRATORY FAILURE [None]
  - SHOCK [None]
  - TORSADE DE POINTES [None]
  - VENTRICULAR FIBRILLATION [None]
